FAERS Safety Report 4982431-4 (Version None)
Quarter: 2006Q2

REPORT INFORMATION
  Report Type: 
  Country: None (occurrence: None)
  Receive Date: 20060421
  Receipt Date: 20060408
  Transmission Date: 20061013
  Serious: Yes (Other)
  Sender: FDA-Public Use
  Company Number: GXKR2006US02099

PATIENT
  Age: 45 Year
  Sex: Male

DRUGS (13)
  1. LINEZOLID [Suspect]
     Dosage: UNK
     Route: 065
  2. SERTRALINE (NGX) (SERTRALINE) UNKNOWN [Suspect]
     Dosage: UNK
     Route: 065
  3. BUPROPION (NGX) (BUPROPION) TABLET [Suspect]
     Dosage: UNK
     Route: 065
  4. TRAZODONE (NGX) (TRAZODONE) UNKNOWN [Suspect]
     Dosage: UNK
     Route: 065
  5. METRONIDAZOLE [Concomitant]
  6. LITHIUM (LITHIUM) [Concomitant]
  7. BACLOFEN [Concomitant]
  8. PROMETHAZINE [Concomitant]
  9. DOCUSATE SODIUM (DOCUSATE SODIUM) [Concomitant]
  10. BISACODYL (BISACODYL) [Concomitant]
  11. MEGESTROL ACETATE [Concomitant]
  12. LANSOPRAZOLE [Concomitant]
  13. RISPERIDONE [Concomitant]

REACTIONS (3)
  - ANTIPSYCHOTIC DRUG LEVEL INCREASED [None]
  - DRUG INTERACTION [None]
  - SEROTONIN SYNDROME [None]
